FAERS Safety Report 13079629 (Version 1)
Quarter: 2017Q1

REPORT INFORMATION
  Report Type: Spontaneous
  Country: HR (occurrence: HR)
  Receive Date: 20170103
  Receipt Date: 20170103
  Transmission Date: 20170428
  Serious: Yes (Hospitalization)
  Sender: FDA-Public Use
  Company Number: PHHY2016HR175688

PATIENT
  Sex: Male

DRUGS (7)
  1. RISPERIDONE. [Suspect]
     Active Substance: RISPERIDONE
     Indication: PSYCHOTIC DISORDER
     Dosage: 2 MG, QD (DOSAGE FORM: UNSPECIFIED, 0,0,2)
     Route: 065
     Dates: end: 201605
  2. PROMAZINE [Suspect]
     Active Substance: PROMAZINE
     Indication: PSYCHOTIC DISORDER
     Dosage: 100 MG, TID (DOSAGE FORM: UNSPECIFIED, 1-1-1)
     Route: 065
  3. DIAZEPAM. [Suspect]
     Active Substance: DIAZEPAM
     Dosage: 10 MG, TID
     Route: 065
  4. XEPLION [Suspect]
     Active Substance: PALIPERIDONE PALMITATE
     Dosage: 150 MG, UNK
     Route: 030
     Dates: start: 201605, end: 201605
  5. XEPLION [Suspect]
     Active Substance: PALIPERIDONE PALMITATE
     Indication: PSYCHOTIC DISORDER
     Dosage: 100 MG, UNK
     Route: 030
     Dates: start: 201605
  6. DIAZEPAM. [Suspect]
     Active Substance: DIAZEPAM
     Indication: PSYCHOTIC DISORDER
     Dosage: 10 MG, TID
     Route: 065
  7. PROMAZINE [Suspect]
     Active Substance: PROMAZINE
     Dosage: 25 MG, UNK
     Route: 065

REACTIONS (2)
  - Psychotic disorder [Recovered/Resolved]
  - Suicidal ideation [Recovered/Resolved]

NARRATIVE: CASE EVENT DATE: 201606
